FAERS Safety Report 11115717 (Version 1)
Quarter: 2015Q2

REPORT INFORMATION
  Report Type: Spontaneous
  Country: US (occurrence: None)
  Receive Date: 20150514
  Receipt Date: 20150514
  Transmission Date: 20150821
  Serious: Yes (Hospitalization)
  Sender: FDA-Public Use
  Company Number: None

PATIENT
  Age: 36 Year
  Sex: Female

DRUGS (1)
  1. TEMOZOLOMIDE 250 [Suspect]
     Active Substance: TEMOZOLOMIDE
     Dates: start: 20150430, end: 20150504

REACTIONS (1)
  - Neoplasm recurrence [None]

NARRATIVE: CASE EVENT DATE: 20150504
